FAERS Safety Report 9788378 (Version 3)
Quarter: 2014Q1

REPORT INFORMATION
  Report Type: Report from Study
  Country: GB (occurrence: GB)
  Receive Date: 20131230
  Receipt Date: 20140318
  Transmission Date: 20141002
  Serious: Yes (Death, Hospitalization)
  Sender: FDA-Public Use
  Company Number: GB-INCYTE CORPORATION-2013IN002332

PATIENT
  Age: 70 Year
  Sex: Male
  Weight: 79.6 kg

DRUGS (6)
  1. JAKAVI [Suspect]
     Indication: MYELOFIBROSIS
     Dosage: 25 MG, BID
     Route: 048
     Dates: start: 201301
  2. DIGOXIN [Concomitant]
     Dosage: UNK
     Dates: start: 201301
  3. SOTALOL [Concomitant]
     Dosage: UNK
     Dates: start: 201106
  4. TAMSULOSIN [Concomitant]
     Dosage: UNK
     Dates: start: 2003
  5. OMEPRAZOLE [Concomitant]
     Dosage: UNK
     Dates: start: 2011
  6. PENICILLIN VK [Concomitant]
     Dosage: UNK
     Dates: start: 201104

REACTIONS (13)
  - Sepsis [Fatal]
  - Peritonitis [Not Recovered/Not Resolved]
  - Diverticular perforation [Not Recovered/Not Resolved]
  - Disseminated intravascular coagulation [Not Recovered/Not Resolved]
  - Renal failure [Not Recovered/Not Resolved]
  - Respiratory failure [Not Recovered/Not Resolved]
  - Cardiac failure [Not Recovered/Not Resolved]
  - Headache [Not Recovered/Not Resolved]
  - Chills [Not Recovered/Not Resolved]
  - Anaemia [Not Recovered/Not Resolved]
  - Abdominal distension [Not Recovered/Not Resolved]
  - Hepatic function abnormal [Not Recovered/Not Resolved]
  - Tachycardia [Not Recovered/Not Resolved]
